FAERS Safety Report 15262569 (Version 1)
Quarter: 2018Q3

REPORT INFORMATION
  Report Type: Spontaneous
  Country: DE (occurrence: DE)
  Receive Date: 20180809
  Receipt Date: 20180809
  Transmission Date: 20181010
  Serious: Yes (Hospitalization)
  Sender: FDA-Public Use
  Company Number: PHHY2014DE185242

PATIENT
  Age: 67 Year
  Weight: 93 kg

DRUGS (13)
  1. FOLINIC ACID [Suspect]
     Active Substance: LEUCOVORIN
     Indication: COLORECTAL CANCER METASTATIC
     Dosage: 400 MG, UNK
     Route: 065
     Dates: start: 20130304, end: 20130708
  2. BEVACIZUMAB. [Suspect]
     Active Substance: BEVACIZUMAB
     Indication: COLORECTAL CANCER METASTATIC
     Dosage: 465 MG, UNK
     Route: 065
  3. 5?FU [Concomitant]
     Active Substance: FLUOROURACIL
     Dosage: 800 MG, UNK
     Route: 040
  4. 5?FU [Concomitant]
     Active Substance: FLUOROURACIL
     Dosage: 2400 MG, UNK
     Route: 042
     Dates: start: 20140113
  5. 5?FU [Concomitant]
     Active Substance: FLUOROURACIL
     Dosage: 800 MG, UNK
     Route: 042
     Dates: start: 20140113
  6. OXALIPLATIN. [Suspect]
     Active Substance: OXALIPLATIN
     Dosage: 170 MG, UNK
     Route: 065
     Dates: start: 20130304, end: 20130415
  7. BEVACIZUMAB. [Suspect]
     Active Substance: BEVACIZUMAB
     Dosage: 465 MG, UNK (LAST DOSE PRIOR TO EVENT 13 JAN 2014)
     Route: 042
     Dates: start: 20140113
  8. 5?FU [Concomitant]
     Active Substance: FLUOROURACIL
     Indication: PRODUCT USED FOR UNKNOWN INDICATION
     Dosage: 1900 MG, UNK
     Route: 041
  9. 5?FU [Concomitant]
     Active Substance: FLUOROURACIL
     Dosage: 2400 MG, UNK
     Route: 041
  10. OXALIPLATIN. [Suspect]
     Active Substance: OXALIPLATIN
     Indication: COLORECTAL CANCER METASTATIC
     Dosage: 130 MG, UNK
     Route: 065
     Dates: start: 20130530, end: 20130729
  11. MORPHINE SULFATE. [Concomitant]
     Active Substance: MORPHINE SULFATE
     Indication: PAIN
     Dosage: 20?20?10 MG PER DAY.
     Route: 058
  12. OXALIPLATIN. [Suspect]
     Active Substance: OXALIPLATIN
     Dosage: 100 MG, UNK
     Route: 042
     Dates: start: 20140113
  13. FOLINIC ACID [Suspect]
     Active Substance: LEUCOVORIN
     Dosage: 400 MG, Q2W
     Route: 042
     Dates: start: 20140113

REACTIONS (2)
  - Stoma site abscess [Recovered/Resolved]
  - Stomatitis [Recovered/Resolved]

NARRATIVE: CASE EVENT DATE: 20130626
